FAERS Safety Report 10043267 (Version 3)
Quarter: 2014Q2

REPORT INFORMATION
  Report Type: Spontaneous
  Country: IT (occurrence: IT)
  Receive Date: 20140328
  Receipt Date: 20140521
  Transmission Date: 20141212
  Serious: Yes (Hospitalization)
  Sender: FDA-Public Use
  Company Number: PHHY2014IT035834

PATIENT
  Age: 49 Year
  Sex: Male

DRUGS (1)
  1. TASIGNA [Suspect]
     Indication: ACUTE MYELOID LEUKAEMIA
     Dosage: 600 MG, QOD
     Route: 048
     Dates: start: 20131003, end: 20131112

REACTIONS (2)
  - Blindness unilateral [Recovered/Resolved with Sequelae]
  - Papilloedema [Recovered/Resolved with Sequelae]
